FAERS Safety Report 15714973 (Version 1)
Quarter: 2018Q4

REPORT INFORMATION
  Report Type: Report from Study
  Country: US (occurrence: US)
  Receive Date: 20181212
  Receipt Date: 20181212
  Transmission Date: 20190205
  Serious: Yes (Death, Other)
  Sender: FDA-Public Use
  Company Number: US-MYLANLABS-2018M1091180

PATIENT
  Age: 67 Year
  Sex: Male

DRUGS (2)
  1. CC-486 [Suspect]
     Active Substance: AZACITIDINE
     Indication: PROPHYLAXIS
     Dosage: ADMINISTERED FOR 7 DAYS DURING EACH OF THE SCHEDULED 28 DAY CYCLES
     Route: 048
  2. TACROLIMUS. [Suspect]
     Active Substance: TACROLIMUS
     Indication: PRODUCT USED FOR UNKNOWN INDICATION
     Route: 065

REACTIONS (6)
  - Thrombotic thrombocytopenic purpura [Unknown]
  - Neutropenia [Unknown]
  - Thrombocytopenia [Unknown]
  - Haemolysis [Unknown]
  - Haemorrhage intracranial [Fatal]
  - Pneumonia [Unknown]
